FAERS Safety Report 6288986-4 (Version None)
Quarter: 2009Q3

REPORT INFORMATION
  Report Type: 
  Country: None (occurrence: None)
  Receive Date: 20090729
  Receipt Date: 20090720
  Transmission Date: 20100115
  Serious: Yes (Other)
  Sender: FDA-Public Use
  Company Number: PHHY2009BR30444

PATIENT
  Sex: Female
  Weight: 74 kg

DRUGS (4)
  1. TEGRETOL [Suspect]
     Dosage: 200 MG, UNK
  2. TEGRETOL [Suspect]
     Dosage: UNK
  3. PANTOPRAZOLE SODIUM [Concomitant]
     Dosage: 1 TABLET IN THE MORNING
     Route: 048
  4. MIDAZOLAM MALEATE [Concomitant]
     Indication: INSOMNIA
     Dosage: 1 TABLET DAILY
     Route: 048
     Dates: start: 20090501

REACTIONS (4)
  - AGGRESSION [None]
  - DEPRESSION [None]
  - GASTRIC ULCER [None]
  - NERVOUSNESS [None]
